FAERS Safety Report 17011776 (Version 6)
Quarter: 2019Q4

REPORT INFORMATION
  Report Type: Report from Study
  Country: DE (occurrence: DE)
  Receive Date: 20191108
  Receipt Date: 20191213
  Transmission Date: 20200122
  Serious: No
  Sender: FDA-Public Use
  Company Number: DE-EISAI MEDICAL RESEARCH-EC-2019-064816

PATIENT
  Age: 69 Year
  Sex: Male
  Weight: 77 kg

DRUGS (14)
  1. LENVATINIB [Suspect]
     Active Substance: LENVATINIB
     Route: 048
     Dates: start: 20191018, end: 20191030
  2. PANTOPRAZOLE [Concomitant]
     Active Substance: PANTOPRAZOLE
     Dates: start: 20190929
  3. RAMIPRIL. [Concomitant]
     Active Substance: RAMIPRIL
     Dates: start: 201707
  4. LOPERAMID HYDROCHLORIDE [Concomitant]
     Dates: start: 20191017
  5. PLACEBO [Suspect]
     Active Substance: UNSPECIFIED INGREDIENT
     Route: 041
     Dates: start: 20191121
  6. ASPIRIN. [Concomitant]
     Active Substance: ASPIRIN
     Dates: start: 201707
  7. DIPYRONE [Concomitant]
     Active Substance: DIPYRONE
     Dates: start: 201909
  8. LENVATINIB [Suspect]
     Active Substance: LENVATINIB
     Indication: HEPATOCELLULAR CARCINOMA
     Dosage: 12 MG, QD (DOSE ALSO REPORTED AS 1 MG)
     Route: 048
     Dates: start: 20191017, end: 20191017
  9. METOCLOPRAMIDE. [Concomitant]
     Active Substance: METOCLOPRAMIDE
     Dates: start: 201910
  10. PLACEBO [Suspect]
     Active Substance: UNSPECIFIED INGREDIENT
     Indication: HEPATOCELLULAR CARCINOMA
     Route: 041
     Dates: start: 20191017, end: 20191017
  11. BECLOMETHASONE DIPROPIONATE AND FORMOTEROL FUMARATE [Concomitant]
     Dates: start: 201507
  12. SIMVASTATIN. [Concomitant]
     Active Substance: SIMVASTATIN
     Dates: start: 201707
  13. FENTANYL. [Concomitant]
     Active Substance: FENTANYL
     Dates: start: 201909
  14. HYDROCHLORTHIAZID [Concomitant]
     Active Substance: HYDROCHLOROTHIAZIDE
     Dates: start: 201707

REACTIONS (1)
  - Alanine aminotransferase increased [Recovered/Resolved]

NARRATIVE: CASE EVENT DATE: 20191031
